FAERS Safety Report 5919448-9 (Version None)
Quarter: 2008Q4

REPORT INFORMATION
  Report Type: 
  Country: None (occurrence: None)
  Receive Date: 20081015
  Receipt Date: 20081009
  Transmission Date: 20090506
  Serious: Yes (Death)
  Sender: FDA-Public Use
  Company Number: PHBS2008TW05981

PATIENT
  Age: 21 Year
  Sex: Female

DRUGS (7)
  1. CYCLOSPORINE [Suspect]
     Indication: STEM CELL TRANSPLANT
  2. CYCLOSPORINE [Suspect]
     Indication: PROPHYLAXIS AGAINST GRAFT VERSUS HOST DISEASE
  3. ANTI-THYMOCYTE GLOBULIN NOS [Suspect]
     Indication: STEM CELL TRANSPLANT
  4. STEROIDS NOS [Suspect]
     Indication: STEM CELL TRANSPLANT
  5. FLUDARABINE PHOSPHATE [Concomitant]
     Indication: STEM CELL TRANSPLANT
  6. CYTARABINE [Concomitant]
     Indication: STEM CELL TRANSPLANT
  7. NEUPOGEN [Concomitant]
     Indication: STEM CELL TRANSPLANT

REACTIONS (6)
  - DIFFUSE LARGE B-CELL LYMPHOMA STAGE IV [None]
  - EPSTEIN-BARR VIRUS ASSOCIATED LYMPHOPROLIFERATIVE DISORDER [None]
  - EPSTEIN-BARR VIRUS INFECTION [None]
  - LYMPHADENOPATHY [None]
  - NO THERAPEUTIC RESPONSE [None]
  - PYREXIA [None]
